FAERS Safety Report 18236012 (Version 6)
Quarter: 2024Q1

REPORT INFORMATION
  Report Type: Report from Study
  Country: JP (occurrence: JP)
  Receive Date: 20200905
  Receipt Date: 20240308
  Transmission Date: 20240409
  Serious: Yes (Other)
  Sender: FDA-Public Use
  Company Number: JP-CELLTRION INC.-2020JP026467

PATIENT

DRUGS (11)
  1. INFLIXIMAB [Suspect]
     Active Substance: INFLIXIMAB
     Indication: Crohn^s disease
     Dosage: 295 MG: WEIGHT WAS 59.0 KG
     Route: 041
     Dates: start: 20181217, end: 20181217
  2. INFLIXIMAB [Suspect]
     Active Substance: INFLIXIMAB
     Dosage: 300 MG; WEIGHT WAS 59.5 KG
     Route: 041
     Dates: start: 20190206, end: 20190206
  3. INFLIXIMAB [Suspect]
     Active Substance: INFLIXIMAB
     Dosage: 300MG; WEIGHT WAS 60.0 KG
     Route: 041
     Dates: start: 20190403, end: 20190403
  4. INFLIXIMAB [Suspect]
     Active Substance: INFLIXIMAB
     Dosage: 295 MG; WEIGHT WAS 58.9 KG
     Route: 041
     Dates: start: 20190611, end: 20190611
  5. INFLIXIMAB [Suspect]
     Active Substance: INFLIXIMAB
     Dosage: 320 MG; WEIGHT WAS 64.0 KG
     Route: 041
     Dates: start: 20191211, end: 20191211
  6. INFLIXIMAB [Suspect]
     Active Substance: INFLIXIMAB
     Dosage: 310 MG; WEIGHT WAS 62.0 KG
     Route: 041
     Dates: start: 20210116, end: 20210116
  7. INFLIXIMAB [Suspect]
     Active Substance: INFLIXIMAB
     Dosage: 335 MG; WEIGHT WAS 67.0 KG
     Route: 041
     Dates: start: 20211211, end: 20211211
  8. INFLIXIMAB [Suspect]
     Active Substance: INFLIXIMAB
     Dosage: 355 MG; WEIGHT WAS 70.9 KG
     Route: 041
     Dates: start: 20221207, end: 20221207
  9. MONTELUKAST SODIUM [Suspect]
     Active Substance: MONTELUKAST SODIUM
     Indication: Cough variant asthma
     Dosage: UNK
     Dates: start: 20191016
  10. BILASTINE [Suspect]
     Active Substance: BILASTINE
     Indication: Cough variant asthma
     Dosage: UNK
     Dates: start: 20191016
  11. FORMOTEROL FUMARATE [Suspect]
     Active Substance: FORMOTEROL FUMARATE
     Dosage: UNK
     Dates: start: 20191016

REACTIONS (11)
  - Genital haemorrhage [Unknown]
  - Pharyngotonsillitis [Recovered/Resolved]
  - Cough variant asthma [Unknown]
  - Arthropod bite [Recovered/Resolved]
  - Dermatitis psoriasiform [Not Recovered/Not Resolved]
  - Nasopharyngitis [Recovered/Resolved]
  - Pruritus [Not Recovered/Not Resolved]
  - Hypertension [Not Recovered/Not Resolved]
  - Nasopharyngitis [Unknown]
  - Overdose [Unknown]
  - Off label use [Unknown]

NARRATIVE: CASE EVENT DATE: 20191016
